FAERS Safety Report 5551372-6 (Version None)
Quarter: 2007Q4

REPORT INFORMATION
  Report Type: 
  Country: None (occurrence: None)
  Receive Date: 20071128
  Receipt Date: 20061201
  Transmission Date: 20080405
  Serious: Yes (Other)
  Sender: FDA-Public Use
  Company Number: 2006124631

PATIENT
  Age: 57 Year
  Sex: Male
  Weight: 119.296 kg

DRUGS (2)
  1. LIPITOR [Suspect]
     Indication: CORONARY ARTERY DISEASE
     Dosage: (20 MG, 1 IN 1 D), ORAL
     Route: 048
     Dates: start: 20051201, end: 20061005
  2. LIPITOR [Suspect]
     Indication: HYPERCHOLESTEROLAEMIA
     Dosage: (20 MG, 1 IN 1 D), ORAL
     Route: 048
     Dates: start: 20051201, end: 20061005

REACTIONS (2)
  - BLOOD CREATINE PHOSPHOKINASE INCREASED [None]
  - MYALGIA [None]
